FAERS Safety Report 4901416-7 (Version None)
Quarter: 2006Q1

REPORT INFORMATION
  Report Type: 
  Country: None (occurrence: None)
  Receive Date: 20060201
  Receipt Date: 20060201
  Transmission Date: 20060701
  Serious: Yes (Hospitalization)
  Sender: FDA-Public Use
  Company Number: None

PATIENT
  Sex: Female

DRUGS (2)
  1. NORMAL SALINE [Suspect]
     Indication: PERITONEAL LAVAGE
  2. PERITONEAL LAVAGE PARACENTESIS [Concomitant]

REACTIONS (6)
  - ABDOMINAL PAIN [None]
  - NAUSEA [None]
  - NEUTROPHIL COUNT INCREASED [None]
  - PYREXIA [None]
  - VOMITING [None]
  - WHITE BLOOD CELL COUNT INCREASED [None]
